FAERS Safety Report 21582157 (Version 2)
Quarter: 2022Q4

REPORT INFORMATION
  Report Type: Report from Study
  Country: TW (occurrence: TW)
  Receive Date: 20221111
  Receipt Date: 20221118
  Transmission Date: 20230112
  Serious: Yes (Hospitalization)
  Sender: FDA-Public Use
  Company Number: TW-BoehringerIngelheim-2022-BI-201017

PATIENT
  Age: 72 Year
  Sex: Male
  Weight: 57 kg

DRUGS (3)
  1. AFATINIB [Suspect]
     Active Substance: AFATINIB
     Indication: Oesophageal squamous cell carcinoma
     Route: 048
     Dates: start: 20220817, end: 20220906
  2. EZABENLIMAB [Suspect]
     Active Substance: EZABENLIMAB
     Indication: Oesophageal squamous cell carcinoma
     Route: 042
     Dates: start: 20220817, end: 20220817
  3. SULAMPI [Concomitant]
     Indication: Pyrexia
     Dosage: IN VITRO DIAGNOSTICS
     Dates: start: 20221016, end: 20221025

REACTIONS (1)
  - Dysphagia [Unknown]

NARRATIVE: CASE EVENT DATE: 20221017
